FAERS Safety Report 16306318 (Version 2)
Quarter: 2021Q1

REPORT INFORMATION
  Report Type: Spontaneous
  Country: US (occurrence: US)
  Receive Date: 20190513
  Receipt Date: 20210202
  Transmission Date: 20210419
  Serious: Yes (Other)
  Sender: FDA-Public Use
  Company Number: US-ASTRAZENECA-2019SE66077

PATIENT
  Sex: Male

DRUGS (74)
  1. PRAZOSIN. [Concomitant]
     Active Substance: PRAZOSIN
  2. LANTUS [Concomitant]
     Active Substance: INSULIN GLARGINE
  3. PROMETHAZINE/CODEINE [Concomitant]
     Active Substance: CODEINE\PROMETHAZINE
  4. GATIFLOXACIN. [Concomitant]
     Active Substance: GATIFLOXACIN
  5. PREVACID [Suspect]
     Active Substance: LANSOPRAZOLE
     Indication: GASTROOESOPHAGEAL REFLUX DISEASE
     Route: 065
  6. ZYRTEC [Concomitant]
     Active Substance: CETIRIZINE HYDROCHLORIDE
     Indication: MULTIPLE ALLERGIES
  7. SODIUM CHLORIDE. [Concomitant]
     Active Substance: SODIUM CHLORIDE
  8. MENTHOL. [Concomitant]
     Active Substance: MENTHOL
  9. SILDENAFIL CITRATE. [Concomitant]
     Active Substance: SILDENAFIL CITRATE
  10. POTASSIUM CHLORIDE. [Concomitant]
     Active Substance: POTASSIUM CHLORIDE
  11. ISOSORBIDE MONONITRATE. [Concomitant]
     Active Substance: ISOSORBIDE MONONITRATE
  12. IMODIUM [Concomitant]
     Active Substance: LOPERAMIDE HYDROCHLORIDE
  13. PRILOSEC [Suspect]
     Active Substance: OMEPRAZOLE MAGNESIUM
     Indication: ABDOMINAL DISTENSION
     Dosage: GENERIC
     Route: 048
     Dates: start: 20190208, end: 20200209
  14. ACETAMINOPHEN. [Concomitant]
     Active Substance: ACETAMINOPHEN
     Indication: PAIN
  15. LATANOPROST. [Concomitant]
     Active Substance: LATANOPROST
  16. NICOTINE. [Concomitant]
     Active Substance: NICOTINE
  17. TERAZOSIN [Concomitant]
     Active Substance: TERAZOSIN HYDROCHLORIDE
  18. CHOLECALCIFEROL [Concomitant]
     Active Substance: CHOLECALCIFEROL
  19. MAALOX ANTACID [Concomitant]
     Active Substance: ALUMINUM HYDROXIDE\DIMETHICONE\MAGNESIUM HYDROXIDE
  20. CLOPIDOGREL [Concomitant]
     Active Substance: CLOPIDOGREL BISULFATE
  21. JANUVIA [Concomitant]
     Active Substance: SITAGLIPTIN PHOSPHATE
  22. SENNA [Concomitant]
     Active Substance: SENNA LEAF\SENNOSIDES\SENNOSIDES A AND B
  23. SODIUM BICARBONATE. [Concomitant]
     Active Substance: SODIUM BICARBONATE
  24. PRILOSEC [Suspect]
     Active Substance: OMEPRAZOLE MAGNESIUM
     Indication: GASTROOESOPHAGEAL REFLUX DISEASE
     Dosage: GENERIC
     Route: 065
  25. PRILOSEC [Suspect]
     Active Substance: OMEPRAZOLE MAGNESIUM
     Indication: ABDOMINAL DISTENSION
     Dosage: GENERIC
     Route: 065
  26. PRILOSEC [Suspect]
     Active Substance: OMEPRAZOLE MAGNESIUM
     Indication: GASTROOESOPHAGEAL REFLUX DISEASE
     Dosage: GENERIC
     Route: 048
     Dates: start: 20190208, end: 20200209
  27. AMLODIPINE BESYLATE. [Concomitant]
     Active Substance: AMLODIPINE BESYLATE
  28. POLYVINYL ALCOHOL [Concomitant]
     Active Substance: POLYVINYL ALCOHOL
  29. GUAIFENESIN. [Concomitant]
     Active Substance: GUAIFENESIN
  30. DEXTROSE. [Concomitant]
     Active Substance: DEXTROSE
  31. AMOXICILLIN. [Concomitant]
     Active Substance: AMOXICILLIN
  32. CYCLOBENZAPRINE HCL [Concomitant]
     Active Substance: CYCLOBENZAPRINE HYDROCHLORIDE
  33. METFORMIN [Concomitant]
     Active Substance: METFORMIN HYDROCHLORIDE
  34. ACTOS [Concomitant]
     Active Substance: PIOGLITAZONE HYDROCHLORIDE
  35. WELCHOL [Concomitant]
     Active Substance: COLESEVELAM HYDROCHLORIDE
  36. KETOCONAZOLE. [Concomitant]
     Active Substance: KETOCONAZOLE
  37. MAGNESIUM CITRATE. [Concomitant]
     Active Substance: MAGNESIUM CITRATE
  38. FISH OIL [Concomitant]
     Active Substance: FISH OIL
     Indication: GENERAL PHYSICAL HEALTH DETERIORATION
  39. ZANTAC [Concomitant]
     Active Substance: RANITIDINE HYDROCHLORIDE
  40. DOXAZOSIN MESYLATE. [Concomitant]
     Active Substance: DOXAZOSIN MESYLATE
  41. THERA?GESIC [Concomitant]
  42. OXYBUTYNIN. [Concomitant]
     Active Substance: OXYBUTYNIN CHLORIDE
  43. FERROUS SULFATE. [Concomitant]
     Active Substance: FERROUS SULFATE
  44. LEVAQUIN [Concomitant]
     Active Substance: LEVOFLOXACIN
  45. ALPRAZOLAM. [Concomitant]
     Active Substance: ALPRAZOLAM
  46. NITROGLYCERIN. [Concomitant]
     Active Substance: NITROGLYCERIN
  47. HYDROCHLOROTHIAZIDE. [Concomitant]
     Active Substance: HYDROCHLOROTHIAZIDE
     Indication: BLOOD PRESSURE ABNORMAL
  48. MULTIVITAMINS [Concomitant]
     Active Substance: VITAMINS
     Indication: GENERAL PHYSICAL HEALTH DETERIORATION
  49. DICLOFENAC [Concomitant]
     Active Substance: DICLOFENAC
  50. TRIAMCINOLONE ACETONIDE. [Concomitant]
     Active Substance: TRIAMCINOLONE ACETONIDE
  51. TUMS [Concomitant]
     Active Substance: CALCIUM CARBONATE
  52. BYETTA [Concomitant]
     Active Substance: EXENATIDE
  53. KOMBIGLYZE XR [Concomitant]
     Active Substance: METFORMIN HYDROCHLORIDE\SAXAGLIPTIN HYDROCHLORIDE
  54. PREDNISONE. [Concomitant]
     Active Substance: PREDNISONE
  55. SULFACETAMIDE. [Concomitant]
     Active Substance: SULFACETAMIDE
  56. PRILOSEC [Suspect]
     Active Substance: OMEPRAZOLE MAGNESIUM
     Indication: GASTROOESOPHAGEAL REFLUX DISEASE
     Route: 048
  57. PRILOSEC [Suspect]
     Active Substance: OMEPRAZOLE MAGNESIUM
     Indication: ABDOMINAL DISTENSION
     Route: 048
  58. OXYBUTYNIN CHLORIDE. [Concomitant]
     Active Substance: OXYBUTYNIN CHLORIDE
  59. THIAMINE. [Concomitant]
     Active Substance: THIAMINE
  60. PROMETHAZINE [Concomitant]
     Active Substance: PROMETHAZINE HYDROCHLORIDE
  61. ENALAPRIL [Concomitant]
     Active Substance: ENALAPRIL
  62. LIPITOR [Concomitant]
     Active Substance: ATORVASTATIN CALCIUM
  63. NABUMETONE. [Concomitant]
     Active Substance: NABUMETONE
  64. METOPROLOL. [Concomitant]
     Active Substance: METOPROLOL
  65. DIPHENHYDRAMINE. [Concomitant]
     Active Substance: DIPHENHYDRAMINE
  66. EPOGEN [Concomitant]
     Active Substance: ERYTHROPOIETIN
  67. NEXIUM [Suspect]
     Active Substance: ESOMEPRAZOLE MAGNESIUM
     Indication: GASTROOESOPHAGEAL REFLUX DISEASE
     Route: 048
  68. IBUPROFEN. [Concomitant]
     Active Substance: IBUPROFEN
     Indication: PAIN
  69. MIRTAZAPINE. [Concomitant]
     Active Substance: MIRTAZAPINE
  70. CAMPHOR [Concomitant]
     Active Substance: CAMPHOR
  71. DOXAZOSIN [Concomitant]
     Active Substance: DOXAZOSIN MESYLATE
  72. FLUNISOLIDE. [Concomitant]
     Active Substance: FLUNISOLIDE
  73. SIMVASTATIN. [Concomitant]
     Active Substance: SIMVASTATIN
  74. SENSIPAR [Concomitant]
     Active Substance: CINACALCET HYDROCHLORIDE

REACTIONS (2)
  - Chronic kidney disease [Not Recovered/Not Resolved]
  - Acute kidney injury [Unknown]
